FAERS Safety Report 4289587-X (Version None)
Quarter: 2004Q1

REPORT INFORMATION
  Report Type: 
  Country: None (occurrence: None)
  Receive Date: 20040205
  Receipt Date: 20040115
  Transmission Date: 20041129
  Serious: Yes (Life-Threatening, Hospitalization, Other)
  Sender: FDA-Public Use
  Company Number: WAES 0309DEU00161

PATIENT
  Age: 86 Year
  Sex: Male

DRUGS (10)
  1. ZETIA [Suspect]
     Indication: HYPERCHOLESTEROLAEMIA
     Dosage: 10 MG/DAILY; PO
     Route: 048
     Dates: start: 20030425, end: 20030429
  2. ASPIRIN [Concomitant]
  3. CLOPIDOGREL  BESULFATE [Concomitant]
  4. DIGITOXIN INJ [Concomitant]
  5. ENALAPRIL MALEATE [Concomitant]
  6. HYDROCHLOROTHIAZIDE [Concomitant]
  7. PANTOPRAZOLE SODIUM [Concomitant]
  8. PENTAERYTHRITOL TETRANITRATE [Concomitant]
  9. SACCHAROMYCES BOULARDI (AS DRUG) [Concomitant]
  10. VALPROATE SODIUM [Concomitant]

REACTIONS (3)
  - ACUTE CORONARY SYNDROME [None]
  - HEPATIC CIRRHOSIS [None]
  - PANCREATITIS [None]
